FAERS Safety Report 4533333-9 (Version None)
Quarter: 2004Q4

REPORT INFORMATION
  Report Type: 
  Country: None (occurrence: None)
  Receive Date: 20041210
  Receipt Date: 20040825
  Transmission Date: 20050328
  Serious: Yes (Other)
  Sender: FDA-Public Use
  Company Number: A03200402959

PATIENT
  Age: 48 Year
  Sex: Female

DRUGS (2)
  1. ELOXATIN [Suspect]
     Indication: COLON CANCER METASTATIC
     Dosage: 146 MG Q2W - INTRAVENOUS NOS
     Route: 042
     Dates: start: 20040825, end: 20040825
  2. LEUCOVORIN CALCIUM [Concomitant]

REACTIONS (5)
  - CELLULITIS [None]
  - INFUSION SITE ERYTHEMA [None]
  - INFUSION SITE PAIN [None]
  - INJECTION SITE EXTRAVASATION [None]
  - INJECTION SITE INFECTION [None]
